FAERS Safety Report 4277237-8 (Version None)
Quarter: 2004Q1

REPORT INFORMATION
  Report Type: 
  Country: None (occurrence: None)
  Receive Date: 20040120
  Receipt Date: 20040106
  Transmission Date: 20041129
  Serious: Yes (Disabling)
  Sender: FDA-Public Use
  Company Number: 2004AP00057

PATIENT
  Age: 56 Year
  Sex: Female

DRUGS (5)
  1. PROPOFOL [Suspect]
     Indication: ANAESTHESIA
     Dosage: 10 MG/KG ONCE
  2. PROPOFOL [Suspect]
     Indication: ANAESTHESIA
     Dosage: 8 MG/KG ONCE
  3. PROPOFOL [Suspect]
     Indication: ANAESTHESIA
     Dosage: 4 MG/KG ONCE
  4. FENTANYL [Concomitant]
  5. VECURONIUM [Concomitant]

REACTIONS (9)
  - ANAESTHETIC COMPLICATION [None]
  - BLOOD CREATINE PHOSPHOKINASE INCREASED [None]
  - BLOOD CREATINE PHOSPHOKINASE MB INCREASED [None]
  - BLOOD LACTATE DEHYDROGENASE INCREASED [None]
  - BLOOD UREA INCREASED [None]
  - BRAIN OEDEMA [None]
  - EXTENSOR PLANTAR RESPONSE [None]
  - MUTISM [None]
  - SOMNOLENCE [None]
